FAERS Safety Report 5481861-4 (Version None)
Quarter: 2007Q4

REPORT INFORMATION
  Report Type: 
  Country: None (occurrence: None)
  Receive Date: 20071010
  Receipt Date: 20071005
  Transmission Date: 20080405
  Serious: Yes (Other)
  Sender: FDA-Public Use
  Company Number: US-BOEHRINGER INGELHEIM PHARMACEUTICALS, INC.-2007-BP-22265BP

PATIENT
  Age: 58 Year
  Sex: Male

DRUGS (1)
  1. MIRAPEX [Suspect]
     Indication: RESTLESS LEGS SYNDROME
     Route: 048
     Dates: start: 20000101, end: 20070501

REACTIONS (8)
  - ANXIETY [None]
  - CEREBROVASCULAR ACCIDENT [None]
  - DEPENDENCE [None]
  - DEPRESSION [None]
  - DYSARTHRIA [None]
  - OBSESSIVE-COMPULSIVE DISORDER [None]
  - URINARY TRACT DISORDER [None]
  - WEIGHT INCREASED [None]
